FAERS Safety Report 8319754-7 (Version None)
Quarter: 2012Q2

REPORT INFORMATION
  Report Type: 
  Country: None (occurrence: None)
  Receive Date: 20120427
  Receipt Date: 20120425
  Transmission Date: 20120825
  Serious: Yes (Hospitalization)
  Sender: FDA-Public Use
  Company Number: PHHY2011GB109013

PATIENT
  Age: 71 Year
  Sex: Female

DRUGS (4)
  1. GLICLAZIDE [Suspect]
     Dosage: 40 MG, BID
  2. METFORMIN HCL [Suspect]
     Indication: TYPE 2 DIABETES MELLITUS
     Dosage: 1 G, BID
  3. GLICLAZIDE [Suspect]
     Indication: TYPE 2 DIABETES MELLITUS
     Dosage: 80 MG, BID
  4. ALCOHOL [Suspect]
     Dosage: 9 U, UNK

REACTIONS (12)
  - HYPOTHERMIA [None]
  - TACHYPNOEA [None]
  - CIRCULATORY COLLAPSE [None]
  - HYPOGLYCAEMIA [None]
  - HYPOTENSION [None]
  - RESPIRATORY RATE INCREASED [None]
  - LOWER RESPIRATORY TRACT INFECTION [None]
  - WHITE BLOOD CELL COUNT INCREASED [None]
  - BREATH SOUNDS ABNORMAL [None]
  - COMA [None]
  - LACTIC ACIDOSIS [None]
  - RENAL IMPAIRMENT [None]
